FAERS Safety Report 9677175 (Version 1)
Quarter: 2013Q4

REPORT INFORMATION
  Report Type: Spontaneous
  Country: CA (occurrence: CA)
  Receive Date: 20131108
  Receipt Date: 20131108
  Transmission Date: 20140711
  Serious: Yes (Other)
  Sender: FDA-Public Use
  Company Number: CA-ROCHE-1300947

PATIENT
  Age: 22 Year
  Sex: Female

DRUGS (4)
  1. XOLAIR [Suspect]
     Indication: ASTHMA
     Route: 058
     Dates: start: 20120611
  2. SYMBICORT [Concomitant]
  3. ALVESCO [Concomitant]
  4. SINGULAIR [Concomitant]

REACTIONS (6)
  - Dyspnoea [Recovered/Resolved]
  - Gastroenteritis [Recovering/Resolving]
  - Balance disorder [Unknown]
  - Nasal congestion [Unknown]
  - Oropharyngeal pain [Unknown]
  - Nausea [Unknown]
